FAERS Safety Report 10031815 (Version 1)
Quarter: 2014Q1

REPORT INFORMATION
  Report Type: Spontaneous
  Country: GR (occurrence: GR)
  Receive Date: 20140324
  Receipt Date: 20140324
  Transmission Date: 20141002
  Serious: Yes (Life-Threatening)
  Sender: FDA-Public Use
  Company Number: GR-UCBSA-115154

PATIENT
  Sex: Female

DRUGS (4)
  1. KEPPRA [Suspect]
     Indication: EPILEPSY
     Dosage: DAILY
     Route: 042
  2. PLAVIX [Concomitant]
     Route: 048
  3. SALOSPIR [Concomitant]
     Route: 048
  4. EPANUTIN [Concomitant]

REACTIONS (3)
  - Pruritus [Recovered/Resolved]
  - Balance disorder [Unknown]
  - Nasal dryness [Unknown]
